FAERS Safety Report 12714295 (Version 1)
Quarter: 2016Q3

REPORT INFORMATION
  Report Type: Spontaneous
  Country: US (occurrence: US)
  Receive Date: 20160905
  Receipt Date: 20160905
  Transmission Date: 20161109
  Serious: No
  Sender: FDA-Public Use
  Company Number: US-PFIZER INC-2016415167

PATIENT
  Age: 55 Year
  Sex: Female
  Weight: 72.57 kg

DRUGS (2)
  1. IBRANCE [Suspect]
     Active Substance: PALBOCICLIB
     Dosage: 100 MG, CYCLIC (100MG CAPSULES IN THE MORNING BY MOUTH, 21 DAYS ON AND 7 DAYS OFF)
     Route: 048
     Dates: start: 201607
  2. IBRANCE [Suspect]
     Active Substance: PALBOCICLIB
     Indication: BREAST CANCER METASTATIC
     Dosage: 100 MG, CYCLIC (100MG CAPSULES IN THE MORNING BY MOUTH, 21 DAYS ON AND 7 DAYS OFF)
     Route: 048
     Dates: end: 201605

REACTIONS (3)
  - Disease progression [Unknown]
  - Breast cancer metastatic [Unknown]
  - Blood count abnormal [Recovered/Resolved]

NARRATIVE: CASE EVENT DATE: 201605
